FAERS Safety Report 6829413-5 (Version None)
Quarter: 2010Q3

REPORT INFORMATION
  Report Type: 
  Country: None (occurrence: None)
  Receive Date: 20100709
  Receipt Date: 20070309
  Transmission Date: 20110219
  Serious: Yes (Other)
  Sender: FDA-Public Use
  Company Number: US-PFIZER INC-2007011792

PATIENT
  Sex: Male
  Weight: 74.8 kg

DRUGS (8)
  1. CHANTIX [Suspect]
     Indication: EX-TOBACCO USER
     Route: 048
     Dates: start: 20070101
  2. CHANTIX [Suspect]
     Indication: TOBACCO ABUSE
  3. ALBUTEROL [Concomitant]
     Route: 048
  4. SPIRIVA [Concomitant]
     Route: 048
  5. PREDNISONE [Concomitant]
     Indication: EMPHYSEMA
     Dosage: AS NEEDED
  6. LIPITOR [Concomitant]
  7. ACETYLSALICYLIC ACID [Concomitant]
  8. ADVAIR DISKUS 100/50 [Concomitant]
     Route: 048

REACTIONS (2)
  - PRURITUS [None]
  - RASH [None]
